FAERS Safety Report 9186150 (Version 2)
Quarter: 2013Q2

REPORT INFORMATION
  Report Type: Report from Study
  Country: NL (occurrence: NL)
  Receive Date: 20130325
  Receipt Date: 20130402
  Transmission Date: 20140414
  Serious: Yes (Life-Threatening)
  Sender: FDA-Public Use
  Company Number: NL-ASTRAZENECA-2013SE17845

PATIENT
  Age: 25004 Day
  Sex: Male

DRUGS (5)
  1. AZD6140 [Suspect]
     Indication: ACUTE MYOCARDIAL INFARCTION
     Dosage: 180 MG LOADING DOSE IN PRE HOSPITAL, 90 MG TWICE DAILY DURING 30 DAYS
     Route: 048
     Dates: start: 20130307
  2. METOPROLOL [Concomitant]
     Indication: HYPERTENSION
     Route: 048
  3. VALSARTAN [Concomitant]
     Indication: HYPERTENSION
     Route: 048
  4. TOLBUTAMIDE [Concomitant]
     Indication: DIABETES MELLITUS
     Route: 048
  5. METFORMIN [Concomitant]
     Indication: DIABETES MELLITUS
     Route: 048

REACTIONS (2)
  - Cardiogenic shock [Recovered/Resolved]
  - Ventricular fibrillation [Recovered/Resolved]
